FAERS Safety Report 6923995-0 (Version None)
Quarter: 2010Q3

REPORT INFORMATION
  Report Type: 
  Country: None (occurrence: None)
  Receive Date: 20100813
  Receipt Date: 20100810
  Transmission Date: 20110219
  Serious: Yes (Life-Threatening, Hospitalization)
  Sender: FDA-Public Use
  Company Number: GXKR2010DE07256

PATIENT
  Sex: Male
  Weight: 85 kg

DRUGS (4)
  1. RAMIPRIL HEXAL COMP (NGX) [Suspect]
     Dosage: 5/25 MG; QD
     Route: 048
  2. AMLODIPINE [Concomitant]
     Dosage: 5 MG, QD
     Route: 048
  3. METOPROLOL SUCCINATE [Concomitant]
     Dosage: 47.5 MG, QD
     Route: 048
  4. TORSEMIDE [Concomitant]
     Dosage: 10 MG, QD
     Route: 048

REACTIONS (7)
  - ANAEMIA MACROCYTIC [None]
  - ASTHENIA [None]
  - DYSPNOEA [None]
  - FATIGUE [None]
  - IMMUNE SYSTEM DISORDER [None]
  - MYELODYSPLASTIC SYNDROME [None]
  - PANCYTOPENIA [None]
